FAERS Safety Report 18106913 (Version 3)
Quarter: 2022Q2

REPORT INFORMATION
  Report Type: Spontaneous
  Country: FR (occurrence: FR)
  Receive Date: 20200803
  Receipt Date: 20220404
  Transmission Date: 20220720
  Serious: Yes (Hospitalization, Other)
  Sender: FDA-Public Use
  Company Number: FR-SA-2018SA070850

PATIENT
  Sex: Female

DRUGS (15)
  1. GABAPENTIN [Suspect]
     Active Substance: GABAPENTIN
     Indication: Epilepsy
     Dosage: 900 MG, UNK
     Route: 048
  2. GABAPENTIN [Suspect]
     Active Substance: GABAPENTIN
     Dosage: 1200 MG, DAILY
     Route: 048
     Dates: start: 199510
  3. GABAPENTIN [Suspect]
     Active Substance: GABAPENTIN
     Dosage: 3 DF, UNK
     Route: 048
     Dates: start: 19960116
  4. GABAPENTIN [Suspect]
     Active Substance: GABAPENTIN
     Dosage: 1200 MG
     Route: 048
     Dates: start: 1997
  5. GABAPENTIN [Suspect]
     Active Substance: GABAPENTIN
     Dosage: 1200 MG, 1X/DAY
     Dates: start: 19990222
  6. GABAPENTIN [Suspect]
     Active Substance: GABAPENTIN
     Dosage: 400 MG, 1X/DAY (1 TABLET IN THE EVENING)
     Route: 048
     Dates: end: 200803
  7. VALPROATE SODIUM [Suspect]
     Active Substance: VALPROATE SODIUM
     Indication: Epilepsy
     Dosage: 2 DF, 1X/DAY (STRENGTH 500 MG )
     Route: 048
     Dates: start: 199411
  8. VALPROATE SODIUM [Suspect]
     Active Substance: VALPROATE SODIUM
     Dosage: 750MG  EVERY 12 H, MORNING AND EVENING
     Route: 048
     Dates: start: 19950224
  9. VALPROATE SODIUM [Suspect]
     Active Substance: VALPROATE SODIUM
     Dosage: 1 DF, 2X/DAY (500 MG STRENGTH)
     Dates: start: 19951010
  10. VALPROATE SODIUM [Suspect]
     Active Substance: VALPROATE SODIUM
     Dosage: 1.5 G, UNK
     Route: 048
     Dates: start: 19951027
  11. VALPROATE SODIUM [Suspect]
     Active Substance: VALPROATE SODIUM
     Dosage: 3 DF, 1X/DAY
     Route: 048
     Dates: start: 19960824
  12. VALPROATE SODIUM [Suspect]
     Active Substance: VALPROATE SODIUM
     Dosage: 3 DF, 1X/DAY (STRENGTH 500 MG)
     Route: 048
     Dates: start: 1997, end: 201601
  13. VALPROATE SODIUM [Suspect]
     Active Substance: VALPROATE SODIUM
     Dosage: 2 DF, 1X/DAY (500 MG)
     Route: 048
     Dates: start: 19990222
  14. VALPROATE SODIUM [Suspect]
     Active Substance: VALPROATE SODIUM
     Dosage: 1000 MG, 1X/DAY
     Dates: start: 201601
  15. LORATADINE [Concomitant]
     Active Substance: LORATADINE
     Indication: Asthma

REACTIONS (18)
  - Cerebellar ataxia [Unknown]
  - Epilepsy [Unknown]
  - Epilepsy [Unknown]
  - Loss of consciousness [Unknown]
  - Epilepsy [Unknown]
  - Fatigue [Unknown]
  - Speech disorder [Unknown]
  - Malaise [Unknown]
  - Disturbance in attention [Recovered/Resolved]
  - Headache [Recovered/Resolved]
  - Exposure during pregnancy [Unknown]
  - Somnolence [Unknown]
  - Insomnia [Unknown]
  - Balance disorder [Unknown]
  - Stress [Unknown]
  - Irritability [Unknown]
  - Polycystic ovaries [Unknown]
  - Influenza like illness [Unknown]

NARRATIVE: CASE EVENT DATE: 19940817
